FAERS Safety Report 17257712 (Version 2)
Quarter: 2020Q2

REPORT INFORMATION
  Report Type: Spontaneous
  Country: US (occurrence: US)
  Receive Date: 20200110
  Receipt Date: 20200402
  Transmission Date: 20200713
  Serious: No
  Sender: FDA-Public Use
  Company Number: US-BEH-2019110989

PATIENT
  Sex: Female
  Weight: 56.24 kg

DRUGS (3)
  1. HAEGARDA [Suspect]
     Active Substance: HUMAN C1-ESTERASE INHIBITOR
     Indication: PROPHYLAXIS
     Dosage: 4000 4000 EVERY 3 TO 4 DAYS
     Route: 042
     Dates: start: 20181126
  2. FIRAZYR [Concomitant]
     Active Substance: ICATIBANT ACETATE
  3. HAEGARDA [Suspect]
     Active Substance: HUMAN C1-ESTERASE INHIBITOR
     Indication: HEREDITARY ANGIOEDEMA
     Dosage: 3500 INTERNATIONAL UNIT, BIW (EVERY 3 DAYS)
     Route: 058
     Dates: start: 20181219

REACTIONS (6)
  - Product dose omission [Unknown]
  - Incorrect route of product administration [Unknown]
  - Product distribution issue [Unknown]
  - No adverse event [Unknown]
  - Frustration tolerance decreased [Unknown]
  - Intentional product misuse [Unknown]
